FAERS Safety Report 7121308-5 (Version None)
Quarter: 2010Q4

REPORT INFORMATION
  Report Type: 
  Country: None (occurrence: None)
  Receive Date: 20101122
  Receipt Date: 20101122
  Transmission Date: 20110411
  Serious: Yes (Life-Threatening)
  Sender: FDA-Public Use
  Company Number: None

PATIENT
  Age: 59 Year
  Sex: Male
  Weight: 54.7 kg

DRUGS (6)
  1. DOXYCYCLINE [Suspect]
     Indication: PNEUMONIA
     Dosage: 100 MG Q 24 HRS IV
     Dates: start: 20101117, end: 20101117
  2. DUONEB [Concomitant]
  3. LOVENOX [Concomitant]
  4. SOLU-MEDROL [Concomitant]
  5. NICOTINE [Concomitant]
  6. PROTONIX [Concomitant]

REACTIONS (4)
  - FLUSHING [None]
  - HYPERTENSION [None]
  - TACHYCARDIA [None]
  - VENTRICULAR TACHYCARDIA [None]
